FAERS Safety Report 25353703 (Version 1)
Quarter: 2025Q2

REPORT INFORMATION
  Report Type: Spontaneous
  Country: US (occurrence: None)
  Receive Date: 20250523
  Receipt Date: 20250523
  Transmission Date: 20250717
  Serious: Yes (Hospitalization)
  Sender: FDA-CTU
  Company Number: None

PATIENT
  Age: 51 Year
  Sex: Female

DRUGS (1)
  1. BOTOX [Suspect]
     Active Substance: ONABOTULINUMTOXINA
     Indication: Muscle spasticity
     Route: 030
     Dates: start: 20250507, end: 20250507

REACTIONS (6)
  - Muscular weakness [None]
  - Eating disorder [None]
  - Fluid intake reduced [None]
  - Oxygen saturation decreased [None]
  - Hypoaesthesia [None]
  - Botulism [None]

NARRATIVE: CASE EVENT DATE: 20250515
